FAERS Safety Report 25719473 (Version 3)
Quarter: 2025Q3

REPORT INFORMATION
  Report Type: Report from Study
  Country: US (occurrence: US)
  Receive Date: 20250824
  Receipt Date: 20250918
  Transmission Date: 20251020
  Serious: Yes (Other)
  Sender: ROCHE
  Company Number: US-ROCHE-10000365941

PATIENT
  Sex: Male

DRUGS (9)
  1. OCREVUS [Suspect]
     Active Substance: OCRELIZUMAB
     Indication: Multiple sclerosis
     Dosage: REPEAT THE DOSE IN 2 WEEKS OR 15 DAYS THEN INFUSE 600 MG EVERY 6 MONTHS THEREAFTER FIRST DOSE
     Route: 042
  2. OCREVUS ZUNOVO [Suspect]
     Active Substance: HYALURONIDASE-OCSQ\OCRELIZUMAB
     Indication: Multiple sclerosis
     Route: 058
  3. BENADRYL [Concomitant]
     Active Substance: DIPHENHYDRAMINE HYDROCHLORIDE
     Indication: Pruritus
  4. TYLENOL [Concomitant]
     Active Substance: ACETAMINOPHEN
  5. VITAMIN D3 [Concomitant]
     Active Substance: CHOLECALCIFEROL
  6. BIOTIN [Concomitant]
     Active Substance: BIOTIN
  7. MAGNESIUM [Concomitant]
     Active Substance: MAGNESIUM
     Route: 048
  8. ashwagandha root extract [Concomitant]
     Route: 048
  9. GABAPENTIN [Concomitant]
     Active Substance: GABAPENTIN

REACTIONS (16)
  - Multiple sclerosis relapse [Unknown]
  - Gait disturbance [Unknown]
  - Muscular weakness [Unknown]
  - Clumsiness [Unknown]
  - Muscle spasticity [Unknown]
  - Joint instability [Unknown]
  - Peroneal nerve palsy [Unknown]
  - Myelopathy [Unknown]
  - Sleep disorder [Unknown]
  - Tachycardia [Unknown]
  - Palpitations [Unknown]
  - Pain in extremity [Unknown]
  - Urinary incontinence [Unknown]
  - Alopecia [Unknown]
  - Burning sensation [Unknown]
  - Skin disorder [Unknown]
